FAERS Safety Report 17424697 (Version 1)
Quarter: 2020Q1

REPORT INFORMATION
  Report Type: Spontaneous
  Country: US (occurrence: US)
  Receive Date: 20200217
  Receipt Date: 20200217
  Transmission Date: 20200409
  Serious: No
  Sender: FDA-Public Use
  Company Number: US-009507513-2002USA005185

PATIENT
  Sex: Female

DRUGS (15)
  1. MAXALT [Suspect]
     Active Substance: RIZATRIPTAN BENZOATE
     Dosage: 5 MILLIGRAM (1 TABLET)
     Dates: start: 20190430
  2. VALACYCLOVIR HYDROCHLORIDE. [Suspect]
     Active Substance: VALACYCLOVIR HYDROCHLORIDE
     Dosage: 500 MILLIGRAM, 22 DOSES
     Dates: start: 20191230, end: 20200122
  3. PEPTO-BISMOL [Suspect]
     Active Substance: BISMUTH SUBSALICYLATE
     Dosage: 262 MG X 2
  4. NAPROXEN. [Suspect]
     Active Substance: NAPROXEN
     Dosage: 500 MILLIGRAM, 1 DOSAGE FORM EACH DAY
     Dates: start: 20190419
  5. NAPROXEN. [Suspect]
     Active Substance: NAPROXEN
     Dosage: 500 MILLIGRAM, 1 DOSAGE FORM EACH DAY
     Dates: start: 20190427
  6. XANAX [Suspect]
     Active Substance: ALPRAZOLAM
     Dosage: 0.5 MILLIGRAM
     Dates: start: 20190502
  7. MAXALT [Suspect]
     Active Substance: RIZATRIPTAN BENZOATE
     Dosage: 5 MILLIGRAM (1 TABLET)
     Dates: start: 20190507
  8. ACETAMINOPHEN. [Suspect]
     Active Substance: ACETAMINOPHEN
     Dosage: 500 MILLIGRAM, 1 DOSE
     Dates: start: 20190501
  9. DIPHENHYDRAMINE. [Suspect]
     Active Substance: DIPHENHYDRAMINE
     Dosage: 25 MILLIGRAM, 1 DOSAGE FORM
     Dates: start: 20190508
  10. ACETAMINOPHEN (+) BUTALBITAL [Suspect]
     Active Substance: ACETAMINOPHEN\BUTALBITAL
     Dosage: STRENGTH: 50.25.40 (UNITS NOT PROVIDED)
     Dates: start: 201911
  11. NAPROXEN. [Suspect]
     Active Substance: NAPROXEN
     Dosage: 500 MILLIGRAM, 1 DOSAGE FORM EACH DAY
     Dates: start: 20190506
  12. VITAMINS (UNSPECIFIED) [Suspect]
     Active Substance: VITAMINS
     Dosage: UNK
  13. XANAX [Suspect]
     Active Substance: ALPRAZOLAM
     Dosage: 0.5 MILLIGRAM
     Dates: start: 20190430
  14. DIPHENHYDRAMINE. [Suspect]
     Active Substance: DIPHENHYDRAMINE
     Dosage: 25 MILLIGRAM, 1 DOSAGE FORM
     Dates: start: 20190506
  15. REGLAN [Suspect]
     Active Substance: METOCLOPRAMIDE HYDROCHLORIDE
     Dosage: 10 MILLIGRAM
     Dates: start: 20190829

REACTIONS (1)
  - Maternal exposure during pregnancy [Unknown]
